FAERS Safety Report 23048306 (Version 1)
Quarter: 2023Q4

REPORT INFORMATION
  Report Type: Report from Study
  Country: US (occurrence: None)
  Receive Date: 20231010
  Receipt Date: 20231010
  Transmission Date: 20240109
  Serious: Yes (Other)
  Sender: FDA-Public Use
  Company Number: US-Unichem Pharmaceuticals (USA) Inc-UCM202310-001240

PATIENT
  Age: 19 Year
  Sex: Male

DRUGS (1)
  1. BACLOFEN [Suspect]
     Active Substance: BACLOFEN
     Indication: Product used for unknown indication
     Dosage: UNKNOWN

REACTIONS (3)
  - Catatonia [Recovered/Resolved]
  - Muscle spasticity [Recovering/Resolving]
  - Drug withdrawal syndrome [Unknown]
